FAERS Safety Report 4953883-0 (Version None)
Quarter: 2006Q1

REPORT INFORMATION
  Report Type: 
  Country: None (occurrence: None)
  Receive Date: 20060327
  Receipt Date: 20060316
  Transmission Date: 20060701
  Serious: Yes (Hospitalization)
  Sender: FDA-Public Use
  Company Number: FI-JNJFOC-20031001592

PATIENT
  Age: 81 Year
  Sex: Female

DRUGS (4)
  1. REMICADE [Suspect]
     Indication: CROHN'S DISEASE
     Route: 042
  2. ASACOL [Concomitant]
     Indication: CROHN'S DISEASE
     Route: 048
  3. FOSAMAX [Concomitant]
     Indication: OSTEOPOROSIS
     Route: 048
  4. PREDNISOLONE [Concomitant]
     Indication: CROHN'S DISEASE

REACTIONS (3)
  - DISSEMINATED TUBERCULOSIS [None]
  - LEUKOPENIA [None]
  - THROMBOCYTOPENIA [None]
